FAERS Safety Report 11449996 (Version 1)
Quarter: 2015Q3

REPORT INFORMATION
  Report Type: Spontaneous
  Country: US (occurrence: US)
  Receive Date: 20150903
  Receipt Date: 20150903
  Transmission Date: 20151125
  Serious: Yes (Other)
  Sender: FDA-Public Use
  Company Number: US-ROCHE-740209

PATIENT
  Age: 66 Year
  Sex: Male

DRUGS (2)
  1. PEGASYS [Suspect]
     Active Substance: PEGINTERFERON ALFA-2A
     Indication: HEPATITIS C
     Dosage: FORM: PRE-FILLED SYRINGE
     Route: 058
     Dates: start: 20101029, end: 20101228
  2. COPEGUS [Suspect]
     Active Substance: RIBAVIRIN
     Indication: HEPATITIS C
     Dosage: IN DIVIDED DOSES
     Route: 048
     Dates: start: 20101029, end: 20101228

REACTIONS (9)
  - Cough [Unknown]
  - Dehydration [Unknown]
  - Irritability [Unknown]
  - Mood altered [Unknown]
  - Hepatic cirrhosis [Unknown]
  - Syncope [Unknown]
  - Dizziness [Unknown]
  - Fatigue [Unknown]
  - Hypotension [Unknown]

NARRATIVE: CASE EVENT DATE: 20101101
